FAERS Safety Report 21696817 (Version 1)
Quarter: 2022Q4

REPORT INFORMATION
  Report Type: Spontaneous
  Country: FR (occurrence: FR)
  Receive Date: 20221208
  Receipt Date: 20221208
  Transmission Date: 20230113
  Serious: Yes (Death, Disabling, Other)
  Sender: FDA-Public Use
  Company Number: FR-ABBVIE-4227891

PATIENT
  Age: 23 Year
  Sex: Male
  Weight: 62 kg

DRUGS (5)
  1. DEPAKOTE [Suspect]
     Active Substance: DIVALPROEX SODIUM
     Indication: Bipolar disorder
     Dosage: 1500 MILLIGRAM
     Route: 048
     Dates: start: 20220902, end: 20220918
  2. VALIUM [Suspect]
     Active Substance: DIAZEPAM
     Indication: Bipolar disorder
     Dosage: 30 MILLIGRAM
     Route: 048
     Dates: start: 20220902, end: 20220918
  3. TERALITHE [Concomitant]
     Active Substance: LITHIUM CARBONATE
     Indication: Bipolar disorder
     Route: 048
     Dates: start: 20220902, end: 20220918
  4. LOXAPINE [Suspect]
     Active Substance: LOXAPINE
     Indication: Bipolar disorder
     Dosage: 275 MILLIGRAM
     Route: 048
     Dates: start: 20220902, end: 20220918
  5. QUETIAPINE [Suspect]
     Active Substance: QUETIAPINE
     Indication: Bipolar disorder
     Dosage: 800 MILLIGRAM
     Route: 048
     Dates: start: 20220902, end: 20220918

REACTIONS (3)
  - Intestinal ischaemia [Fatal]
  - Cardio-respiratory arrest [Recovered/Resolved with Sequelae]
  - Intestinal obstruction [Fatal]

NARRATIVE: CASE EVENT DATE: 20220918
